FAERS Safety Report 12576640 (Version 1)
Quarter: 2016Q3

REPORT INFORMATION
  Report Type: Spontaneous
  Country: SE (occurrence: SE)
  Receive Date: 20160720
  Receipt Date: 20160720
  Transmission Date: 20161109
  Serious: Yes (Hospitalization, Other)
  Sender: FDA-Public Use
  Company Number: SE-ASTRAZENECA-2016SE75924

PATIENT
  Age: 89 Year
  Sex: Female

DRUGS (3)
  1. KAVEPENIN [Concomitant]
     Active Substance: PHENOXYMETHYLPENICILLIN CALCIUM
  2. BRILIQUE [Suspect]
     Active Substance: TICAGRELOR
     Indication: TROPONIN INCREASED
     Route: 048
  3. TROMBYL [Suspect]
     Active Substance: ASPIRIN
     Indication: TROPONIN INCREASED
     Route: 065

REACTIONS (9)
  - Gastrointestinal haemorrhage [Not Recovered/Not Resolved]
  - Anaemia [Unknown]
  - Dyspnoea [Unknown]
  - Infection [Unknown]
  - General physical health deterioration [Unknown]
  - Melaena [Unknown]
  - Blood pressure decreased [Unknown]
  - Chest discomfort [Unknown]
  - Diarrhoea [Unknown]

NARRATIVE: CASE EVENT DATE: 2016
